FAERS Safety Report 5626948-8 (Version None)
Quarter: 2008Q1

REPORT INFORMATION
  Report Type: 
  Country: None (occurrence: None)
  Receive Date: 20080212
  Receipt Date: 20080204
  Transmission Date: 20080703
  Serious: Yes (Other)
  Sender: FDA-Public Use
  Company Number: PHHY2008JP01320

PATIENT
  Sex: Male

DRUGS (1)
  1. LAMISIL AT [Suspect]
     Indication: TINEA INFECTION
     Dosage: 3G/DAY, ORAL
     Route: 048
     Dates: start: 20080203, end: 20080203

REACTIONS (7)
  - ACCIDENTAL EXPOSURE [None]
  - BLOOD BILIRUBIN INCREASED [None]
  - EPISTAXIS [None]
  - GASTROENTERITIS [None]
  - HAEMATEMESIS [None]
  - NASOPHARYNGITIS [None]
  - PROTEIN URINE PRESENT [None]
